FAERS Safety Report 4863908-9 (Version None)
Quarter: 2005Q4

REPORT INFORMATION
  Report Type: 
  Country: None (occurrence: None)
  Receive Date: 20051222
  Receipt Date: 20051214
  Transmission Date: 20060501
  Serious: Yes (Hospitalization, Other)
  Sender: FDA-Public Use
  Company Number: PHEH2005US13525

PATIENT
  Age: 81 Year
  Sex: Female

DRUGS (4)
  1. EXELON [Suspect]
     Indication: DEMENTIA ALZHEIMER'S TYPE
     Route: 048
     Dates: start: 20030601
  2. EXELON [Suspect]
     Dosage: 4.5 MG, BID
     Route: 048
     Dates: end: 20051207
  3. NAMENDA [Suspect]
     Dosage: 5 MG, QD
     Route: 048
     Dates: start: 20051207
  4. NAMENDA [Suspect]
     Dosage: 10 MG, QD
     Route: 048
     Dates: end: 20051212

REACTIONS (4)
  - CATARACT OPERATION [None]
  - HALLUCINATION [None]
  - MOBILITY DECREASED [None]
  - SPEECH DISORDER [None]
